FAERS Safety Report 8062355-9 (Version None)
Quarter: 2012Q1

REPORT INFORMATION
  Report Type: 
  Country: None (occurrence: None)
  Receive Date: 20120123
  Receipt Date: 20120117
  Transmission Date: 20120608
  Serious: Yes (Other)
  Sender: FDA-Public Use
  Company Number: JP-JNJFOC-20110503402

PATIENT
  Sex: Female

DRUGS (1)
  1. RISPERDAL [Suspect]
     Indication: SCHIZOPHRENIA
     Route: 048

REACTIONS (16)
  - SUICIDAL IDEATION [None]
  - ACTIVITIES OF DAILY LIVING IMPAIRED [None]
  - SALIVARY HYPERSECRETION [None]
  - PAIN IN EXTREMITY [None]
  - NAUSEA [None]
  - PAIN [None]
  - DYSGEUSIA [None]
  - AFFECTIVE DISORDER [None]
  - MOVEMENT DISORDER [None]
  - PORIOMANIA [None]
  - MALAISE [None]
  - RESTLESSNESS [None]
  - MUSCLE SPASMS [None]
  - CHEST PAIN [None]
  - CONDITION AGGRAVATED [None]
  - CONDUCT DISORDER [None]
